FAERS Safety Report 8884930 (Version 3)
Quarter: 2013Q1

REPORT INFORMATION
  Report Type: Spontaneous
  Country: ES (occurrence: ES)
  Receive Date: 20121105
  Receipt Date: 20130114
  Transmission Date: 20140127
  Serious: Yes (Hospitalization)
  Sender: FDA-Public Use
  Company Number: ES-AMGEN-ESPSP2012069775

PATIENT
  Age: 64 Year
  Sex: Male
  Weight: 93 kg

DRUGS (5)
  1. VECTIBIX [Suspect]
     Indication: COLON CANCER STAGE IV
     Dosage: 500 MG, Q2WK
     Route: 042
     Dates: start: 20121001, end: 20121001
  2. IRINOTECAN [Concomitant]
     Indication: COLON CANCER STAGE IV
     Dosage: 340 MG, Q2WK
     Route: 042
     Dates: start: 20121001, end: 20121001
  3. 5-FU /00098801/ [Concomitant]
     Indication: COLON CANCER STAGE IV
     Dosage: 760 MG, Q2WK
     Route: 040
     Dates: start: 20121001, end: 20121001
  4. 5-FU /00098801/ [Concomitant]
     Dosage: 4560 MG, Q2WK
     Route: 042
     Dates: start: 20121001, end: 20121001
  5. LEUCOVORIN /00566701/ [Concomitant]
     Indication: COLON CANCER STAGE IV
     Dosage: 760 MG, Q2WK
     Route: 042
     Dates: start: 20121001, end: 20121001

REACTIONS (5)
  - Necrotising fasciitis [Recovering/Resolving]
  - Abscess [Unknown]
  - Escherichia test positive [Unknown]
  - Candida test positive [Unknown]
  - Stenotrophomonas test positive [Unknown]
